FAERS Safety Report 8499214-3 (Version None)
Quarter: 2012Q2

REPORT INFORMATION
  Report Type: 
  Country: None (occurrence: None)
  Receive Date: 20120405
  Receipt Date: 20101201
  Transmission Date: 20120825
  Serious: Yes (Hospitalization)
  Sender: FDA-Public Use
  Company Number: PHHY2010US81918

PATIENT

DRUGS (1)
  1. RECLAST (ZOLEDROANTE) SOLUTION FOR INJECTION [Suspect]
     Dosage: 5 MG, INFUSION

REACTIONS (1)
  - BONE PAIN [None]
